FAERS Safety Report 4437943-9 (Version None)
Quarter: 2004Q3

REPORT INFORMATION
  Report Type: 
  Country: None (occurrence: None)
  Receive Date: 20040831
  Receipt Date: 20040819
  Transmission Date: 20050211
  Serious: Yes (Hospitalization)
  Sender: FDA-Public Use
  Company Number: US-GLAXOSMITHKLINE-A0523750A

PATIENT
  Age: 22 Year
  Sex: Female

DRUGS (1)
  1. PAXIL [Suspect]
     Indication: DRUG USE FOR UNKNOWN INDICATION
     Route: 048
     Dates: start: 20030929

REACTIONS (4)
  - CONVULSION [None]
  - DISABILITY [None]
  - OVERDOSE [None]
  - SUICIDE ATTEMPT [None]
